FAERS Safety Report 18957115 (Version 2)
Quarter: 2021Q1

REPORT INFORMATION
  Report Type: Spontaneous
  Country: US (occurrence: US)
  Receive Date: 20210302
  Receipt Date: 20210309
  Transmission Date: 20210420
  Serious: Yes (Hospitalization, Other)
  Sender: FDA-Public Use
  Company Number: US-AMGEN-USASP2021030643

PATIENT
  Age: 53 Year
  Sex: Female
  Weight: 85 kg

DRUGS (5)
  1. PANTOPRAZOLE SODIUM. [Concomitant]
     Active Substance: PANTOPRAZOLE SODIUM
     Dosage: 40 MILLIGRAM
  2. OTEZLA [Suspect]
     Active Substance: APREMILAST
     Indication: PSORIASIS
     Dosage: UNK
     Route: 065
     Dates: end: 202011
  3. ESTER C [ASCORBIC ACID] [Concomitant]
     Active Substance: ASCORBIC ACID
     Dosage: 1000 TO 200 MG
  4. OTEZLA [Suspect]
     Active Substance: APREMILAST
     Indication: PSORIATIC ARTHROPATHY
  5. HUMIRA [Suspect]
     Active Substance: ADALIMUMAB
     Indication: PSORIATIC ARTHROPATHY
     Dosage: 80 MG SUBQ DAY 1, 40 MG SUBQ DAY 8 AND EVERY OTHER WEEK
     Route: 065
     Dates: start: 2014, end: 202003

REACTIONS (6)
  - Pain [Recovered/Resolved]
  - Oesophageal dilatation [Unknown]
  - Illness [Unknown]
  - Thoracic operation [Unknown]
  - Diarrhoea [Recovered/Resolved]
  - Abdominal hernia repair [Unknown]

NARRATIVE: CASE EVENT DATE: 202003
